FAERS Safety Report 8095056-1 (Version None)
Quarter: 2012Q1

REPORT INFORMATION
  Report Type: 
  Country: None (occurrence: None)
  Receive Date: 20120125
  Receipt Date: 20120113
  Transmission Date: 20120608
  Serious: Yes (Other)
  Sender: FDA-Public Use
  Company Number: DSA_48925_2012

PATIENT
  Age: 59 Year
  Sex: Male

DRUGS (2)
  1. DILTIAZEM [Suspect]
     Indication: ANGINA PECTORIS
     Dosage: (60 MG TID ORAL), (120 MG BID ORAL)
     Route: 048
  2. ATENOLOL [Suspect]
     Indication: ANGINA PECTORIS
     Dosage: (DF ORAL)
     Route: 048

REACTIONS (5)
  - SHOCK [None]
  - INTERMITTENT CLAUDICATION [None]
  - HEADACHE [None]
  - OEDEMA PERIPHERAL [None]
  - BRADYCARDIA [None]
